FAERS Safety Report 10647683 (Version 3)
Quarter: 2015Q1

REPORT INFORMATION
  Report Type: Report from Study
  Country: US (occurrence: US)
  Receive Date: 20141212
  Receipt Date: 20150310
  Transmission Date: 20150720
  Serious: No
  Sender: FDA-Public Use
  Company Number: US-GILEAD-2014-0126728

PATIENT
  Age: 53 Year
  Sex: Female
  Weight: 65.31 kg

DRUGS (6)
  1. REMODULIN [Suspect]
     Active Substance: TREPROSTINIL
     Dosage: 0.023 ?G/KG, UNK
     Route: 058
     Dates: start: 20140919
  2. WARFARIN [Concomitant]
     Active Substance: WARFARIN
  3. REMODULIN [Suspect]
     Active Substance: TREPROSTINIL
     Dosage: 0.037 ?G/KG, UNK
     Route: 058
     Dates: start: 20141125
  4. AMBRISENTAN [Suspect]
     Active Substance: AMBRISENTAN
     Indication: PRODUCT USED FOR UNKNOWN INDICATION
     Dosage: 10 MG, QD
     Route: 065
     Dates: start: 20140113
  5. REMODULIN [Suspect]
     Active Substance: TREPROSTINIL
     Indication: PRODUCT USED FOR UNKNOWN INDICATION
     Dosage: .008 ?G/KG, UNK
     Route: 058
     Dates: start: 20140919
  6. REMODULIN [Suspect]
     Active Substance: TREPROSTINIL
     Dosage: 0.028 ?G/KG, UNK
     Route: 058
     Dates: start: 20140919

REACTIONS (11)
  - Nausea [Not Recovered/Not Resolved]
  - Abdominal pain [Unknown]
  - Chills [Unknown]
  - Oedema [Unknown]
  - Weight increased [Recovered/Resolved]
  - Dyspnoea [Unknown]
  - Abdominal distension [Unknown]
  - Immune system disorder [Unknown]
  - Infusion site swelling [Unknown]
  - Diarrhoea [Unknown]
  - Influenza like illness [Unknown]
